FAERS Safety Report 6519391-0 (Version None)
Quarter: 2009Q4

REPORT INFORMATION
  Report Type: 
  Country: None (occurrence: None)
  Receive Date: 20091228
  Receipt Date: 20091223
  Transmission Date: 20100525
  Serious: Yes (Other)
  Sender: FDA-Public Use
  Company Number: GB-MERCK-0902GBR00033

PATIENT
  Age: 57 Year
  Sex: Male
  Weight: 86 kg

DRUGS (1)
  1. ZOCOR [Suspect]
     Indication: TYPE V HYPERLIPIDAEMIA
     Route: 048
     Dates: start: 20080101, end: 20080206

REACTIONS (5)
  - DYSPNOEA [None]
  - FATIGUE [None]
  - INSPIRATORY CAPACITY DECREASED [None]
  - MYOPATHY [None]
  - RESPIRATORY DISTRESS [None]
